FAERS Safety Report 25102036 (Version 2)
Quarter: 2025Q2

REPORT INFORMATION
  Report Type: Report from Study
  Country: US (occurrence: US)
  Receive Date: 20250320
  Receipt Date: 20250521
  Transmission Date: 20250717
  Serious: No
  Sender: MERCK SHARP & DOHME LLC
  Company Number: US-009507513-2256340

PATIENT
  Age: 66 Year
  Sex: Female
  Weight: 72.121 kg

DRUGS (17)
  1. WINREVAIR [Suspect]
     Active Substance: SOTATERCEPT-CSRK
     Indication: Pulmonary arterial hypertension
     Dosage: INJECT 1MLS SUBCUTANEOUSLY
     Route: 058
  2. WINREVAIR [Suspect]
     Active Substance: SOTATERCEPT-CSRK
  3. WINREVAIR [Suspect]
     Active Substance: SOTATERCEPT-CSRK
  4. WINREVAIR [Suspect]
     Active Substance: SOTATERCEPT-CSRK
  5. REMODULIN [Suspect]
     Active Substance: TREPROSTINIL
     Route: 058
  6. FISH OIL [Concomitant]
     Active Substance: FISH OIL
  7. FUROSEMIDE [Concomitant]
     Active Substance: FUROSEMIDE
  8. TADALAFIL [Concomitant]
     Active Substance: TADALAFIL
  9. POTASSIUM CHLORIDE [Concomitant]
     Active Substance: POTASSIUM CHLORIDE
  10. ALLOPURINOL [Concomitant]
     Active Substance: ALLOPURINOL
  11. ELIQUIS [Concomitant]
     Active Substance: APIXABAN
  12. VITAMIN E [Concomitant]
     Active Substance: .ALPHA.-TOCOPHEROL
  13. PROPRANOLOL HYDROCHLORIDE [Concomitant]
     Active Substance: PROPRANOLOL HYDROCHLORIDE
  14. FAMOTIDINE [Concomitant]
     Active Substance: FAMOTIDINE
  15. OPSUMIT [Concomitant]
     Active Substance: MACITENTAN
  16. SPIRONOLACTONE [Concomitant]
     Active Substance: SPIRONOLACTONE
  17. SPIRONOLACTONE-hydrochlorothiazide [Concomitant]

REACTIONS (5)
  - Injection site erythema [Unknown]
  - Product dose omission issue [Unknown]
  - Liquid product physical issue [Unknown]
  - Injection site discharge [Unknown]
  - Injection site pain [Unknown]

NARRATIVE: CASE EVENT DATE: 20250217
